FAERS Safety Report 9271290 (Version 1)
Quarter: 2013Q2

REPORT INFORMATION
  Report Type: Report from Study
  Country: IL (occurrence: IL)
  Receive Date: 20130506
  Receipt Date: 20130506
  Transmission Date: 20140414
  Serious: Yes (Hospitalization)
  Sender: FDA-Public Use
  Company Number: PHHY2013IL043102

PATIENT
  Age: 62 Year
  Sex: Female

DRUGS (2)
  1. SANDOSTATIN LAR [Suspect]
     Indication: CARCINOID TUMOUR
     Dosage: 30 MG, Q4W
     Dates: start: 20070806
  2. SANDOSTATIN LAR [Suspect]
     Dosage: 30 MG, Q4W
     Dates: start: 20130429

REACTIONS (1)
  - Transient ischaemic attack [Unknown]
